FAERS Safety Report 17992516 (Version 3)
Quarter: 2020Q3

REPORT INFORMATION
  Report Type: Spontaneous
  Country: US (occurrence: US)
  Receive Date: 20200708
  Receipt Date: 20200824
  Transmission Date: 20201103
  Serious: No
  Sender: FDA-Public Use
  Company Number: US-SAGE-2020SAGE000057

PATIENT

DRUGS (5)
  1. ZULRESSO [Suspect]
     Active Substance: BREXANOLONE
     Dosage: 2.6ML/HOUR
     Route: 042
     Dates: start: 20200701, end: 20200701
  2. ZULRESSO [Suspect]
     Active Substance: BREXANOLONE
     Dosage: 60MCG/KG/HOUR
     Route: 042
     Dates: start: 20200701, end: 20200701
  3. ZULRESSO [Suspect]
     Active Substance: BREXANOLONE
     Dosage: 30MCG/KG/HOUR
     Route: 042
     Dates: start: 20200701, end: 20200701
  4. ZULRESSO [Suspect]
     Active Substance: BREXANOLONE
     Dosage: 90 MCG/KG/HOUR
     Route: 042
     Dates: start: 20200630, end: 20200701
  5. ZULRESSO [Suspect]
     Active Substance: BREXANOLONE
     Indication: PERINATAL DEPRESSION
     Dosage: UNK
     Route: 042
     Dates: start: 20200629, end: 20200630

REACTIONS (3)
  - Incorrect drug administration rate [Recovered/Resolved]
  - Inappropriate schedule of product administration [Recovered/Resolved]
  - Underdose [Recovered/Resolved]

NARRATIVE: CASE EVENT DATE: 20200701
